FAERS Safety Report 8235951-3 (Version None)
Quarter: 2012Q1

REPORT INFORMATION
  Report Type: 
  Country: None (occurrence: None)
  Receive Date: 20120326
  Receipt Date: 20120316
  Transmission Date: 20120608
  Serious: Yes (Hospitalization, Other)
  Sender: FDA-Public Use
  Company Number: IT-MERCK-1203ITA00035

PATIENT
  Age: 36 Year
  Sex: Female

DRUGS (1)
  1. SINGULAIR [Suspect]
     Indication: ASTHMA
     Route: 065
     Dates: start: 20030101, end: 20060101

REACTIONS (1)
  - ALLERGIC GRANULOMATOUS ANGIITIS [None]
